FAERS Safety Report 10058431 (Version 1)
Quarter: 2014Q2

REPORT INFORMATION
  Report Type: Spontaneous
  Country: US (occurrence: None)
  Receive Date: 20140403
  Receipt Date: 20140403
  Transmission Date: 20141212
  Serious: Yes (Hospitalization)
  Sender: FDA-Public Use
  Company Number: None

PATIENT
  Age: 47 Year
  Sex: Male
  Weight: 87.3 kg

DRUGS (1)
  1. ALLOPURINOL [Suspect]
     Route: 048
     Dates: start: 20111019, end: 20111113

REACTIONS (13)
  - Abdominal discomfort [None]
  - Diarrhoea [None]
  - Decreased appetite [None]
  - Asthenia [None]
  - Vomiting [None]
  - Syncope [None]
  - Hypotension [None]
  - Tachycardia [None]
  - Hyponatraemia [None]
  - Rash [None]
  - Liver function test abnormal [None]
  - Aspartate aminotransferase increased [None]
  - Alanine aminotransferase increased [None]
